FAERS Safety Report 12749272 (Version 5)
Quarter: 2020Q1

REPORT INFORMATION
  Report Type: Report from Study
  Country: US (occurrence: US)
  Receive Date: 20160915
  Receipt Date: 20200127
  Transmission Date: 20200409
  Serious: Yes (Death, Hospitalization, Other)
  Sender: FDA-Public Use
  Company Number: US-ASTELLAS-2016US013736

PATIENT
  Sex: Male

DRUGS (2)
  1. ENZALUTAMIDE [Suspect]
     Active Substance: ENZALUTAMIDE
     Route: 048
     Dates: start: 20190308
  2. ENZALUTAMIDE [Suspect]
     Active Substance: ENZALUTAMIDE
     Indication: PROSTATE CANCER
     Route: 048
     Dates: start: 20160308

REACTIONS (13)
  - Dementia [Not Recovered/Not Resolved]
  - Balance disorder [Unknown]
  - Blood pressure systolic increased [Not Recovered/Not Resolved]
  - Death [Fatal]
  - Amnesia [Unknown]
  - Infection [Recovered/Resolved]
  - Tremor [Unknown]
  - Fatigue [Unknown]
  - Asthenia [Unknown]
  - Fall [Unknown]
  - Overdose [Unknown]
  - Chest pain [Not Recovered/Not Resolved]
  - Treatment noncompliance [Unknown]

NARRATIVE: CASE EVENT DATE: 2016
